FAERS Safety Report 8778809 (Version 1)
Quarter: 2012Q4

REPORT INFORMATION
  Report Type: 
  Country: ES (occurrence: ES)
  Receive Date: 20120912
  Receipt Date: 20120912
  Transmission Date: 20130627
  Serious: Yes (Hospitalization, Other)
  Sender: FDA-Public Use
  Company Number: ES-GENZYME-THYM-1003410

PATIENT
  Age: 55 Year
  Sex: Male
  Weight: 82 kg

DRUGS (6)
  1. THYMOGLOBULINE [Suspect]
     Indication: BONE MARROW CONDITIONING REGIMEN
     Dosage: UNK
     Route: 042
     Dates: start: 20120412, end: 20120415
  2. FLUDARA [Suspect]
     Indication: BONE MARROW CONDITIONING REGIMEN
     Dosage: UNK
     Route: 042
     Dates: start: 20120412, end: 20120415
  3. MABCAMPATH [Interacting]
     Indication: BONE MARROW CONDITIONING REGIMEN
     Dosage: 1 dose
     Route: 042
     Dates: start: 20120417, end: 20120417
  4. MABCAMPATH [Interacting]
     Indication: DRUG INTOLERANCE
  5. MELPHALAN [Concomitant]
     Indication: BONE MARROW CONDITIONING REGIMEN
     Dosage: UNK
     Route: 042
     Dates: start: 20120416, end: 20120416
  6. TACROLIMUS [Concomitant]
     Indication: PRODUCT USED FOR UNKNOWN INDICATION
     Dosage: UNK
     Route: 065

REACTIONS (7)
  - Lymph node tuberculosis [Not Recovered/Not Resolved]
  - Tooth abscess [Unknown]
  - Cytomegalovirus infection [Unknown]
  - Drug intolerance [Unknown]
  - Drug interaction [Unknown]
  - Off label use [Unknown]
  - Leukopenia [Unknown]
